FAERS Safety Report 7020861-X (Version None)
Quarter: 2010Q3

REPORT INFORMATION
  Report Type: 
  Country: None (occurrence: None)
  Receive Date: 20100929
  Receipt Date: 20100923
  Transmission Date: 20110219
  Serious: Yes (Other)
  Sender: FDA-Public Use
  Company Number: US-TEVA-249411USA

PATIENT
  Age: 33 Year
  Sex: Female

DRUGS (1)
  1. METFORMIN HYDROCHLORIDE [Suspect]

REACTIONS (2)
  - ABORTION SPONTANEOUS [None]
  - DRUG EXPOSURE DURING PREGNANCY [None]
